FAERS Safety Report 5528302-6 (Version None)
Quarter: 2007Q4

REPORT INFORMATION
  Report Type: 
  Country: None (occurrence: None)
  Receive Date: 20071128
  Receipt Date: 20071116
  Transmission Date: 20080405
  Serious: Yes (Hospitalization, Other)
  Sender: FDA-Public Use
  Company Number: GB-GILEAD-2007-0012991

PATIENT
  Sex: Female
  Weight: 34.2 kg

DRUGS (8)
  1. TRUVADA [Suspect]
     Indication: HIV INFECTION
     Route: 048
     Dates: start: 20070621
  2. TRUVADA [Suspect]
     Route: 048
     Dates: end: 20070804
  3. KALETRA [Concomitant]
     Indication: HIV INFECTION
     Route: 048
     Dates: start: 20070621, end: 20070804
  4. OLANZAPINE [Concomitant]
     Indication: PSYCHOTIC DISORDER
     Route: 048
  5. DIAZEPAM [Concomitant]
     Indication: DEPENDENCE
     Route: 048
  6. DIHYDROCODEINE [Concomitant]
     Indication: DEPENDENCE
     Route: 048
  7. SENNA [Concomitant]
  8. PARACETAMOL [Concomitant]

REACTIONS (2)
  - INCORRECT DOSE ADMINISTERED [None]
  - RENAL FAILURE ACUTE [None]
